FAERS Safety Report 9752644 (Version 1)
Quarter: 2013Q4

REPORT INFORMATION
  Report Type: Spontaneous
  Country: IT (occurrence: IT)
  Receive Date: 20131213
  Receipt Date: 20131213
  Transmission Date: 20140711
  Serious: Yes (Hospitalization)
  Sender: FDA-Public Use
  Company Number: IT-NOVOPROD-394931

PATIENT
  Age: 69 Year
  Sex: Female

DRUGS (9)
  1. NOVORAPID FLEXPEN [Suspect]
     Indication: DIABETES MELLITUS
     Dosage: 20 U, TID (60 U QD)
     Route: 058
  2. NOVORAPID FLEXPEN [Suspect]
     Dosage: 78 U, QD
     Route: 058
     Dates: start: 20131104
  3. LEVEMIR FLEXPEN [Concomitant]
     Indication: DIABETES MELLITUS
     Route: 065
  4. OMEPRAZOL                          /00661201/ [Concomitant]
  5. BISOPROLOL FUMARATE [Concomitant]
  6. CARDIOASPIRIN [Concomitant]
     Dosage: 100 MG
  7. ESKIM [Concomitant]
     Dosage: ESKIM 1000 MG
  8. FASLODEX                           /01285001/ [Concomitant]
     Dosage: 250MG/5ML
  9. MOVICOL                            /01625101/ [Concomitant]
     Dosage: MOVICOL 13.8G

REACTIONS (5)
  - Respiratory arrest [Recovered/Resolved]
  - Overdose [Recovered/Resolved]
  - Hypoglycaemia [Recovered/Resolved]
  - Convulsion [Recovered/Resolved]
  - Hyperglycaemia [Unknown]
